FAERS Safety Report 5487336-0 (Version None)
Quarter: 2007Q4

REPORT INFORMATION
  Report Type: 
  Country: None (occurrence: None)
  Receive Date: 20071016
  Receipt Date: 20071004
  Transmission Date: 20080405
  Serious: Yes (Hospitalization, Other)
  Sender: FDA-Public Use
  Company Number: US-PFIZER INC-2006116976

PATIENT
  Sex: Female
  Weight: 65.8 kg

DRUGS (10)
  1. CELEBREX [Suspect]
     Indication: MUSCULOSKELETAL PAIN
  2. CELEBREX [Suspect]
     Indication: NECK PAIN
  3. VIOXX [Suspect]
     Indication: RHEUMATOID ARTHRITIS
     Dates: start: 19990601
  4. VIOXX [Suspect]
     Indication: MUSCULOSKELETAL PAIN
  5. VIOXX [Suspect]
     Indication: NECK PAIN
  6. MOBIC [Concomitant]
  7. NITROQUICK [Concomitant]
  8. REMERON [Concomitant]
  9. STADOL [Concomitant]
  10. XANAX [Concomitant]

REACTIONS (2)
  - MYOCARDIAL INFARCTION [None]
  - THROMBOSIS [None]
